FAERS Safety Report 22201270 (Version 1)
Quarter: 2023Q2

REPORT INFORMATION
  Report Type: Spontaneous
  Country: US (occurrence: US)
  Receive Date: 20230412
  Receipt Date: 20230412
  Transmission Date: 20230722
  Serious: No
  Sender: FDA-Public Use
  Company Number: US-CIPLA LTD.-2023US01587

PATIENT

DRUGS (1)
  1. LANREOTIDE ACETATE [Suspect]
     Active Substance: LANREOTIDE ACETATE
     Indication: Product used for unknown indication
     Dosage: UNK, NORMAL DOSE DUE IN 4 WEEKS AS USUAL
     Route: 065
     Dates: start: 2023

REACTIONS (2)
  - Incorrect dose administered by device [Unknown]
  - Product leakage [Unknown]

NARRATIVE: CASE EVENT DATE: 20230313
